FAERS Safety Report 17451042 (Version 2)
Quarter: 2020Q3

REPORT INFORMATION
  Report Type: Spontaneous
  Country: US (occurrence: US)
  Receive Date: 20200224
  Receipt Date: 20200826
  Transmission Date: 20201102
  Serious: Yes (Other)
  Sender: FDA-Public Use
  Company Number: US-BAYER-2020-030357

PATIENT
  Age: 22 Year
  Sex: Female

DRUGS (1)
  1. KYLEENA [Suspect]
     Active Substance: LEVONORGESTREL
     Indication: CONTRACEPTION
     Dosage: 17.5?G PER DAY CONT
     Route: 015
     Dates: start: 20180510, end: 20190805

REACTIONS (2)
  - Ovarian cyst [None]
  - Uterine haemorrhage [None]

NARRATIVE: CASE EVENT DATE: 20190805
